FAERS Safety Report 6344691-7 (Version None)
Quarter: 2009Q3

REPORT INFORMATION
  Report Type: 
  Country: None (occurrence: None)
  Receive Date: 20090821
  Receipt Date: 20090511
  Transmission Date: 20100115
  Serious: No
  Sender: FDA-Public Use
  Company Number: 8046065

PATIENT
  Age: 55 Year
  Sex: Female
  Weight: 51.2 kg

DRUGS (6)
  1. CIMZIA [Suspect]
     Indication: CROHN'S DISEASE
     Dosage: 400 MG /M SC
     Route: 058
     Dates: start: 20080801
  2. PENTASA [Concomitant]
  3. ENTOCORT EC [Concomitant]
  4. IMURAN [Concomitant]
  5. FIBER-LAX [Concomitant]
  6. NASONEX [Concomitant]

REACTIONS (2)
  - GINGIVAL DISCOLOURATION [None]
  - MOUTH ULCERATION [None]
